FAERS Safety Report 10195362 (Version 2)
Quarter: 2014Q2

REPORT INFORMATION
  Report Type: Spontaneous
  Country: US (occurrence: US)
  Receive Date: 20140526
  Receipt Date: 20140526
  Transmission Date: 20141212
  Serious: No
  Sender: FDA-Public Use
  Company Number: US-ASTRAZENECA-2011SE56177

PATIENT
  Age: 39 Year
  Sex: Female
  Weight: 77.1 kg

DRUGS (3)
  1. SEROQUEL [Suspect]
     Indication: BIPOLAR DISORDER
     Route: 048
     Dates: start: 201103
  2. SEROQUEL [Suspect]
     Indication: BIPOLAR DISORDER
     Dosage: SEROQUEL XR 300 MG HS
     Route: 048
     Dates: start: 2012
  3. SIMVALTA [Concomitant]
     Indication: HYPERSENSITIVITY

REACTIONS (7)
  - Headache [Unknown]
  - Anxiety [Unknown]
  - Malaise [Unknown]
  - Insomnia [Unknown]
  - Back pain [Unknown]
  - Activities of daily living impaired [Unknown]
  - Drug dose omission [Unknown]
